FAERS Safety Report 4345717-2 (Version None)
Quarter: 2004Q2

REPORT INFORMATION
  Report Type: 
  Country: None (occurrence: None)
  Receive Date: 20040421
  Receipt Date: 20040408
  Transmission Date: 20050107
  Serious: Yes (Death, Other)
  Sender: FDA-Public Use
  Company Number: 2004004515

PATIENT
  Age: 83 Year
  Sex: Male

DRUGS (15)
  1. GEODON [Suspect]
     Indication: PSYCHOTIC DISORDER
     Dosage: 10 MG DAILY ORAL
     Route: 048
     Dates: start: 20030713, end: 20030715
  2. CEFAZOLIN [Concomitant]
  3. GLICLAZIDE [Concomitant]
  4. FUROSEMIDE [Concomitant]
  5. DOPAMINE HCL [Concomitant]
  6. LINEZOLID [Concomitant]
  7. DROTRECOGIN ALFA [Concomitant]
  8. PSYLLIUM [Concomitant]
  9. DIGOXIN [Concomitant]
  10. DYAZIDE [Concomitant]
  11. DOCUSATE SODIUM [Concomitant]
  12. ASPIRIN [Concomitant]
  13. METAMUCIL-2 [Concomitant]
  14. MULTIVITAMIN [Concomitant]
  15. PENTOBARBITAL CAP [Concomitant]

REACTIONS (14)
  - ATRIAL FIBRILLATION [None]
  - BLOOD POTASSIUM DECREASED [None]
  - CONFUSIONAL STATE [None]
  - DELUSION [None]
  - DISORIENTATION [None]
  - HAEMODIALYSIS [None]
  - MYOCARDIAL INFARCTION [None]
  - PNEUMONIA ASPIRATION [None]
  - RENAL FAILURE ACUTE [None]
  - RESPIRATORY FAILURE [None]
  - SEDATION [None]
  - STAPHYLOCOCCAL SEPSIS [None]
  - SUPRAVENTRICULAR EXTRASYSTOLES [None]
  - VENTRICULAR EXTRASYSTOLES [None]
